FAERS Safety Report 13003807 (Version 1)
Quarter: 2016Q4

REPORT INFORMATION
  Report Type: Spontaneous
  Country: US (occurrence: US)
  Receive Date: 20161206
  Receipt Date: 20161206
  Transmission Date: 20170207
  Serious: No
  Sender: FDA-Public Use
  Company Number: US-ASTRAZENECA-2016SF24656

PATIENT
  Sex: Male

DRUGS (1)
  1. BYDUREON [Suspect]
     Active Substance: EXENATIDE
     Indication: DIABETES MELLITUS
     Dosage: 2MG, EVERY OTHER WEEK
     Route: 058
     Dates: start: 2012

REACTIONS (3)
  - Off label use [Unknown]
  - Diabetes mellitus inadequate control [Not Recovered/Not Resolved]
  - Drug dose omission [Unknown]
